FAERS Safety Report 19997814 (Version 2)
Quarter: 2021Q4

REPORT INFORMATION
  Report Type: Spontaneous
  Country: US (occurrence: US)
  Receive Date: 20211026
  Receipt Date: 20211201
  Transmission Date: 20220303
  Serious: Yes (Other)
  Sender: FDA-Public Use
  Company Number: US-SANOFI-00817359

PATIENT
  Sex: Female

DRUGS (2)
  1. GOLD BOND MEDICATED ORIGINAL STRENGTH BODY [Suspect]
     Active Substance: MENTHOL
     Dosage: UNK
  2. MEDICATED BODY POWDER [Concomitant]
     Active Substance: MENTHOL\ZINC OXIDE
     Dosage: UNK

REACTIONS (3)
  - Gastric infection [Unknown]
  - Drug ineffective [Unknown]
  - Drug effect less than expected [Unknown]
